FAERS Safety Report 4282057-4 (Version None)
Quarter: 2004Q1

REPORT INFORMATION
  Report Type: 
  Country: None (occurrence: None)
  Receive Date: 20040128
  Receipt Date: 20040113
  Transmission Date: 20041129
  Serious: Yes (Hospitalization, Other)
  Sender: FDA-Public Use
  Company Number: 2004-DE-00061BY

PATIENT
  Age: 78 Year
  Sex: Male

DRUGS (5)
  1. KINZALKOMB (MICARDIS HCT) [Suspect]
     Indication: HYPERTENSION
     Dosage: 80 MG PO
     Route: 048
     Dates: start: 20031016
  2. AGGRENOX (ASASANTIN / GFR) [Concomitant]
  3. PROSCAR [Concomitant]
  4. CHLORTHALIDONE [Concomitant]
  5. GLUCOPHAGE [Concomitant]

REACTIONS (7)
  - AMNESIA [None]
  - BLOOD PRESSURE DECREASED [None]
  - FALL [None]
  - HAEMORRHAGE [None]
  - HEART RATE INCREASED [None]
  - LOSS OF CONSCIOUSNESS [None]
  - SCROTAL VARICOSE VEINS [None]
